FAERS Safety Report 8623775-4 (Version None)
Quarter: 2012Q3

REPORT INFORMATION
  Report Type: 
  Country: None (occurrence: None)
  Receive Date: 20120827
  Receipt Date: 20120820
  Transmission Date: 20120928
  Serious: Yes (Other)
  Sender: FDA-Public Use
  Company Number: GB-SANOFI-AVENTIS-2012SA060198

PATIENT
  Age: 47 Year
  Sex: Female

DRUGS (3)
  1. RAMIPRIL [Concomitant]
  2. PLAQUENIL [Suspect]
     Indication: RHEUMATOID ARTHRITIS
     Route: 048
     Dates: start: 20120315, end: 20120317
  3. ACETAMINOPHEN AND CODEINE PHOSPHATE [Concomitant]
     Dosage: OCCASIONALLY

REACTIONS (3)
  - HAEMATOMA [None]
  - GINGIVAL BLEEDING [None]
  - ABDOMINAL PAIN UPPER [None]
